FAERS Safety Report 4494658-9 (Version None)
Quarter: 2004Q4

REPORT INFORMATION
  Report Type: 
  Country: None (occurrence: None)
  Receive Date: 20041103
  Receipt Date: 20041029
  Transmission Date: 20050328
  Serious: Yes (Life-Threatening, Hospitalization)
  Sender: FDA-Public Use
  Company Number: 2004AC00250

PATIENT
  Age: 62 Year
  Sex: Male

DRUGS (6)
  1. SEROQUEL [Suspect]
     Indication: SCHIZOPHRENIA
     Dosage: 900 MG DAILY PO
     Route: 048
  2. SEROQUEL [Suspect]
     Indication: SCHIZOPHRENIA
     Dosage: 200 MG BID PO
     Route: 048
  3. TEMESTA [Concomitant]
  4. ANAFRANYL [Concomitant]
  5. OMEPRAZOLE [Concomitant]
  6. DEHYDROBENZPERIDOL [Concomitant]

REACTIONS (6)
  - ABNORMAL BEHAVIOUR [None]
  - ATRIOVENTRICULAR BLOCK [None]
  - BUNDLE BRANCH BLOCK LEFT [None]
  - COMA [None]
  - CYANOSIS [None]
  - PARALYSIS [None]
